FAERS Safety Report 5531497-1 (Version None)
Quarter: 2007Q4

REPORT INFORMATION
  Report Type: 
  Country: None (occurrence: None)
  Receive Date: 20071128
  Receipt Date: 20071112
  Transmission Date: 20080405
  Serious: Yes (Disabling)
  Sender: FDA-Public Use
  Company Number: SPV1-2007-03565

PATIENT
  Age: 71 Year
  Sex: Male
  Weight: 77.1 kg

DRUGS (15)
  1. AMATINE( MIDODRINE HYDROCHLORIDE) TABLET [Suspect]
     Indication: HYPOTENSION
     Dosage: 10 MG, 3X/DAY:TID, ORAL
     Route: 048
     Dates: start: 20060505
  2. LIPITOR [Suspect]
     Dosage: ORAL
     Route: 048
     Dates: end: 20070607
  3. ONE ALPHA (ALFACALCIDOL) [Concomitant]
  4. CORTEF [Concomitant]
  5. FLORINEF (FLUDROCORTISONE ACETATE) TABLET [Concomitant]
  6. MOTILIUM (LOPERAMIDE HYDROCHLORIDE) [Concomitant]
  7. COLACE (DOCUSATE SODIUM) [Concomitant]
  8. SODIUM BICARBONATE IN PLASTIC CONTAINER [Concomitant]
  9. GLAXAL BASE (CETOMACROGOL 1000, CETOSTEARYL ALCOHOL, CHLOROCRESOL, PAR [Concomitant]
  10. NOVASEN (ACETYLSALICYLIC ACID) [Concomitant]
  11. PANTOPRAZOLE SODIUM [Concomitant]
  12. CALCIUM (CALCIUM) [Concomitant]
  13. GRAVOL TAB [Concomitant]
  14. ACETAMINOPHEN [Concomitant]
  15. ARANESP [Concomitant]

REACTIONS (2)
  - LICHEN PLANUS [None]
  - RASH [None]
